FAERS Safety Report 7893906-2 (Version None)
Quarter: 2011Q4

REPORT INFORMATION
  Report Type: 
  Country: None (occurrence: None)
  Receive Date: 20111104
  Receipt Date: 20111024
  Transmission Date: 20120403
  Serious: Yes (Hospitalization, Other)
  Sender: FDA-Public Use
  Company Number: DE-PFIZER INC-2011254525

PATIENT
  Sex: Female
  Weight: 3.31 kg

DRUGS (2)
  1. LEUCOVORIN CALCIUM [Concomitant]
     Indication: PROPHYLAXIS OF NEURAL TUBE DEFECT
     Dosage: FROM 11. TO 12. GESTATIONAL WEEK
     Route: 064
  2. SERTRALINE HYDROCHLORIDE [Suspect]
     Indication: DEPRESSION
     Dosage: 100 MG, 1X/DAY
     Route: 064

REACTIONS (6)
  - MATERNAL EXPOSURE DURING PREGNANCY [None]
  - CYANOSIS NEONATAL [None]
  - AGITATION NEONATAL [None]
  - SPINAL DISORDER [None]
  - HAEMATOMA [None]
  - GROSS MOTOR DELAY [None]
